FAERS Safety Report 7442097-0 (Version None)
Quarter: 2011Q2

REPORT INFORMATION
  Report Type: 
  Country: None (occurrence: None)
  Receive Date: 20110428
  Receipt Date: 20101230
  Transmission Date: 20111010
  Serious: Yes (Life-Threatening, Hospitalization, Other)
  Sender: FDA-Public Use
  Company Number: US-BAYER-200928635NA

PATIENT
  Age: 36 Year
  Sex: Female
  Weight: 96 kg

DRUGS (14)
  1. ASPIRIN [Concomitant]
  2. DARVOCET-N 50 [Concomitant]
     Indication: PAIN
     Dosage: AS NEEDED PAIN
  3. XANAX [Concomitant]
     Indication: ANXIETY
  4. ANAPROX [Concomitant]
  5. XANAX [Concomitant]
     Indication: RESTLESSNESS
     Route: 048
     Dates: start: 20080701
  6. AMOXICILLIN [Concomitant]
  7. YAZ [Suspect]
  8. PHENOBARBITAL [Concomitant]
  9. DARVOCET-N 50 [Concomitant]
     Dosage: DARVOCET-N 100. ONE PO Q 4 HOURS PRN PAIN
  10. INDERAL [Concomitant]
     Dosage: 60 MG (DAILY DOSE), QD,
  11. DOXYCYCLINE [Concomitant]
  12. DARVOCET-N 50 [Concomitant]
     Dosage: DARVOCET-N 100. ONE PO Q 4 HOURS PRN PAIN
  13. YASMIN [Suspect]
     Route: 048
     Dates: start: 20020601, end: 20080727
  14. KLONOPIN [Concomitant]

REACTIONS (7)
  - CONVULSION [None]
  - PRE-ECLAMPSIA [None]
  - HYPERTENSIVE ENCEPHALOPATHY [None]
  - PARTIAL SEIZURES [None]
  - PAIN IN EXTREMITY [None]
  - DEEP VEIN THROMBOSIS [None]
  - OEDEMA PERIPHERAL [None]
